FAERS Safety Report 16886758 (Version 10)
Quarter: 2020Q4

REPORT INFORMATION
  Report Type: Report from Study
  Country: DE (occurrence: DE)
  Receive Date: 20191004
  Receipt Date: 20201109
  Transmission Date: 20210113
  Serious: Yes (Life-Threatening, Hospitalization)
  Sender: FDA-Public Use
  Company Number: DE-CELGENEUS-DEU-20190706162

PATIENT
  Age: 80 Year
  Sex: Male
  Weight: 73 kg

DRUGS (22)
  1. AZACITIDINE. [Suspect]
     Active Substance: AZACITIDINE
     Dosage: 150 MILLIGRAM
     Route: 058
     Dates: start: 20200313, end: 20200319
  2. AZACITIDINE. [Suspect]
     Active Substance: AZACITIDINE
     Dosage: 148 MILLIGRAM
     Route: 058
     Dates: start: 20200117, end: 20200123
  3. AZACITIDINE. [Suspect]
     Active Substance: AZACITIDINE
     Dosage: 146 MILLIGRAM
     Route: 058
     Dates: start: 20200214, end: 20200220
  4. ADENURIC [Concomitant]
     Active Substance: FEBUXOSTAT
     Indication: PRODUCT USED FOR UNKNOWN INDICATION
     Dosage: 160 MILLIGRAM
     Route: 048
     Dates: start: 20190604
  5. BIFITERAL [Concomitant]
     Active Substance: LACTULOSE
     Indication: PRODUCT USED FOR UNKNOWN INDICATION
     Dosage: 1 BAG
     Route: 048
     Dates: start: 20190701, end: 20190701
  6. MCP [Concomitant]
     Active Substance: METOCLOPRAMIDE HYDROCHLORIDE
     Indication: PRODUCT USED FOR UNKNOWN INDICATION
     Dosage: 1 AMP
     Route: 041
     Dates: start: 20190703
  7. VITAMIN B12 [Concomitant]
     Active Substance: CYANOCOBALAMIN
     Indication: PRODUCT USED FOR UNKNOWN INDICATION
     Dosage: 1000 MICROGRAM
     Route: 058
     Dates: start: 20190604
  8. AZACITIDINE. [Suspect]
     Active Substance: AZACITIDINE
     Indication: ACUTE MYELOID LEUKAEMIA
     Dosage: 145.5 MILLIGRAM
     Route: 058
     Dates: start: 20190628
  9. AMPHO MORONAL [Concomitant]
     Active Substance: AMPHOTERICIN B
     Indication: PRODUCT USED FOR UNKNOWN INDICATION
     Dosage: 20 MILLILITER
     Route: 048
     Dates: start: 20190604, end: 20190726
  10. GRANISETRON [Concomitant]
     Active Substance: GRANISETRON
     Indication: PRODUCT USED FOR UNKNOWN INDICATION
     Dosage: 2 MILLIGRAM
     Route: 048
     Dates: start: 20190628
  11. PANTOPRAZOLE [Concomitant]
     Active Substance: PANTOPRAZOLE
     Indication: PRODUCT USED FOR UNKNOWN INDICATION
     Dosage: 40 MILLIGRAM
     Route: 048
     Dates: start: 20190702
  12. AG-120 [Suspect]
     Active Substance: IVOSIDENIB
     Indication: ACUTE MYELOID LEUKAEMIA
     Dosage: 500 MILLIGRAM
     Route: 048
     Dates: start: 20190628
  13. AZACITIDINE. [Suspect]
     Active Substance: AZACITIDINE
     Dosage: 145 MILLIGRAM
     Route: 058
     Dates: start: 20190823, end: 20191028
  14. AZACITIDINE. [Suspect]
     Active Substance: AZACITIDINE
     Dosage: 145 MILLIGRAM
     Route: 058
     Dates: start: 20191220, end: 20191226
  15. AZACITIDINE. [Suspect]
     Active Substance: AZACITIDINE
     Dosage: 143 MILLIGRAM
     Route: 058
     Dates: start: 20191122, end: 20191128
  16. AZACITIDINE. [Suspect]
     Active Substance: AZACITIDINE
     Dosage: 149 MILLIGRAM
     Route: 058
     Dates: start: 20200410
  17. CLEXANE [Concomitant]
     Active Substance: ENOXAPARIN SODIUM
     Indication: PRODUCT USED FOR UNKNOWN INDICATION
     Dosage: .45 MILLILITER
     Route: 058
     Dates: start: 20190706, end: 20190709
  18. CEFUROXIME. [Concomitant]
     Active Substance: CEFUROXIME
     Indication: PRODUCT USED FOR UNKNOWN INDICATION
     Dosage: 1000 MILLIGRAM
     Route: 048
     Dates: start: 20190701, end: 20190705
  19. CEFUROXIME. [Concomitant]
     Active Substance: CEFUROXIME
     Route: 048
  20. LAXANS [Concomitant]
     Indication: PRODUCT USED FOR UNKNOWN INDICATION
     Route: 048
     Dates: start: 20190701, end: 20190701
  21. MOVICOL [Concomitant]
     Active Substance: POLYETHYLENE GLYCOL 3350\POTASSIUM CHLORIDE\SODIUM BICARBONATE\SODIUM CHLORIDE
     Indication: PRODUCT USED FOR UNKNOWN INDICATION
     Dosage: 1 BAG
     Route: 048
     Dates: start: 20190604, end: 20190624
  22. HYDROXYUREA. [Concomitant]
     Active Substance: HYDROXYUREA
     Indication: PRODUCT USED FOR UNKNOWN INDICATION
     Dosage: 500 MILLIGRAM
     Route: 048
     Dates: start: 20190605, end: 20190702

REACTIONS (2)
  - Sepsis [Recovered/Resolved]
  - Colitis ischaemic [Recovered/Resolved]

NARRATIVE: CASE EVENT DATE: 20190705
